FAERS Safety Report 7744604-7 (Version None)
Quarter: 2011Q3

REPORT INFORMATION
  Report Type: 
  Country: None (occurrence: None)
  Receive Date: 20110912
  Receipt Date: 20110909
  Transmission Date: 20111222
  Serious: Yes (Other)
  Sender: FDA-Public Use
  Company Number: US-PFIZER INC-2011212764

PATIENT
  Sex: Female
  Weight: 83 kg

DRUGS (2)
  1. LIPITOR [Suspect]
     Indication: BLOOD CHOLESTEROL INCREASED
     Dosage: 10 MG, 1X/DAY
     Route: 048
     Dates: start: 20051001
  2. TOPROL-XL [Concomitant]
     Dosage: 25 MG, 1X/DAY

REACTIONS (5)
  - GROIN PAIN [None]
  - MUSCLE SPASMS [None]
  - HEPATIC STEATOSIS [None]
  - FLUID RETENTION [None]
  - MUSCLE DISORDER [None]
